FAERS Safety Report 24417492 (Version 1)
Quarter: 2024Q4

REPORT INFORMATION
  Report Type: Spontaneous
  Country: US (occurrence: US)
  Receive Date: 20241009
  Receipt Date: 20241009
  Transmission Date: 20250115
  Serious: Yes (Other)
  Sender: PAREXEL
  Company Number: US-COHERUS BIOSCIENCES, INC-2024-COH-US001011

PATIENT

DRUGS (1)
  1. ADALIMUMAB [Suspect]
     Active Substance: ADALIMUMAB
     Indication: Acne conglobata
     Dosage: UNK

REACTIONS (3)
  - Neoplasm progression [Unknown]
  - Squamous cell carcinoma of skin [Unknown]
  - Off label use [Unknown]
